FAERS Safety Report 5351554-2 (Version None)
Quarter: 2007Q2

REPORT INFORMATION
  Report Type: 
  Country: None (occurrence: None)
  Receive Date: 20070521
  Receipt Date: 20070405
  Transmission Date: 20071010
  Serious: No
  Sender: FDA-Public Use
  Company Number: WAES 0704USA01088

PATIENT
  Age: 87 Year
  Sex: Female

DRUGS (18)
  1. JANUVIA [Suspect]
     Indication: DIABETES MELLITUS NON-INSULIN-DEPENDENT
     Dosage: 50 MG/DAILY/PO
     Route: 048
     Dates: start: 20070321, end: 20070329
  2. AMBIEN [Concomitant]
  3. DIOVAN [Concomitant]
  4. IMODIUM [Concomitant]
  5. LIPITOR [Concomitant]
  6. LOVENOX [Concomitant]
  7. PERCOCET [Concomitant]
  8. PLAVIX [Concomitant]
  9. TOPROL-XL [Concomitant]
  10. ULTRAM [Concomitant]
  11. XANAX [Concomitant]
  12. ZOFRAN [Concomitant]
  13. ACETAMINOPHEN W/ PROPOXYPHENE HCL [Concomitant]
  14. ASPIRIN [Concomitant]
  15. FUROSEMIDE [Concomitant]
  16. GLIPIZIDE [Concomitant]
  17. MAGNESIUM OXIDE [Concomitant]
  18. TRAZODONE HCL [Concomitant]

REACTIONS (1)
  - BLOOD GLUCOSE DECREASED [None]
